FAERS Safety Report 7936615-3 (Version None)
Quarter: 2011Q4

REPORT INFORMATION
  Report Type: 
  Country: None (occurrence: None)
  Receive Date: 20111123
  Receipt Date: 20111115
  Transmission Date: 20120403
  Serious: Yes (Hospitalization, Other)
  Sender: FDA-Public Use
  Company Number: US-JNJFOC-20110607058

PATIENT
  Age: 58 Year
  Sex: Male
  Weight: 72.58 kg

DRUGS (1)
  1. NEOSPORIN [Suspect]
     Indication: RASH
     Dosage: LESS THAN A DIME SIZED AMOUNT
     Route: 061
     Dates: start: 20110426, end: 20110426

REACTIONS (26)
  - ABDOMINAL PAIN [None]
  - DYSURIA [None]
  - MYALGIA [None]
  - VOMITING [None]
  - HAEMATURIA [None]
  - NAUSEA [None]
  - PRURITUS [None]
  - SYNCOPE [None]
  - RASH MACULO-PAPULAR [None]
  - INJURY [None]
  - SINUS BRADYCARDIA [None]
  - ATRIAL FIBRILLATION [None]
  - BLOOD PRESSURE DECREASED [None]
  - IMPAIRED WORK ABILITY [None]
  - FATIGUE [None]
  - FALL [None]
  - APHASIA [None]
  - FEELING HOT [None]
  - ERYTHEMA [None]
  - HEADACHE [None]
  - OFF LABEL USE [None]
  - ANAPHYLACTIC REACTION [None]
  - LOSS OF CONSCIOUSNESS [None]
  - HYPOTHERMIA [None]
  - PARAESTHESIA [None]
  - URINE OUTPUT DECREASED [None]
